FAERS Safety Report 17999469 (Version 1)
Quarter: 2020Q3

REPORT INFORMATION
  Report Type: Spontaneous
  Country: PT (occurrence: PT)
  Receive Date: 20200709
  Receipt Date: 20200709
  Transmission Date: 20201103
  Serious: Yes (Death, Other)
  Sender: FDA-Public Use
  Company Number: PT-ASTELLAS-2020US023275

PATIENT
  Age: 46 Year
  Sex: Female

DRUGS (1)
  1. AMPHOTERICIN B, LIPOSOME [Suspect]
     Active Substance: AMPHOTERICIN B
     Indication: FUNGAL INFECTION
     Route: 065
     Dates: start: 2020, end: 2020

REACTIONS (3)
  - General physical health deterioration [Unknown]
  - Fungal abscess central nervous system [Fatal]
  - Condition aggravated [Unknown]
